FAERS Safety Report 9196164 (Version 1)
Quarter: 2013Q1

REPORT INFORMATION
  Report Type: Spontaneous
  Country: US (occurrence: US)
  Receive Date: 20130328
  Receipt Date: 20130328
  Transmission Date: 20140127
  Serious: No
  Sender: FDA-Public Use
  Company Number: US-JNJFOC-20130311302

PATIENT
  Age: 41 Year
  Sex: Male
  Weight: 106.6 kg

DRUGS (1)
  1. DURAGESIC [Suspect]
     Indication: MARFAN^S SYNDROME
     Dosage: 100 UG/HR + 50 UG/HR
     Route: 062
     Dates: start: 20130308

REACTIONS (4)
  - Hyperhidrosis [Not Recovered/Not Resolved]
  - Withdrawal syndrome [Not Recovered/Not Resolved]
  - Product quality issue [Not Recovered/Not Resolved]
  - Wrong technique in drug usage process [Not Recovered/Not Resolved]
